FAERS Safety Report 13640068 (Version 1)
Quarter: 2017Q2

REPORT INFORMATION
  Report Type: Spontaneous
  Country: US (occurrence: US)
  Receive Date: 20170609
  Receipt Date: 20170609
  Transmission Date: 20170830
  Serious: No
  Sender: FDA-Public Use
  Company Number: US-ROCHE-634898

PATIENT
  Sex: Female

DRUGS (2)
  1. CLONAZEPAM. [Suspect]
     Active Substance: CLONAZEPAM
     Indication: SOMNOLENCE
     Dosage: FREQUENCY: QHS
     Route: 048
     Dates: start: 20090506, end: 20090506
  2. FENTANYL. [Interacting]
     Active Substance: FENTANYL
     Indication: CANCER PAIN
     Dosage: DRUG NAME: FENTANYL-25; STRENGTH: 25 MCG/HR
     Route: 062
     Dates: start: 20090504, end: 20090506

REACTIONS (4)
  - Dizziness [Recovered/Resolved]
  - Somnolence [Recovered/Resolved]
  - Asthenia [Recovered/Resolved]
  - Drug interaction [Unknown]

NARRATIVE: CASE EVENT DATE: 20090506
